FAERS Safety Report 14978041 (Version 1)
Quarter: 2018Q2

REPORT INFORMATION
  Report Type: Report from Study
  Country: DE (occurrence: DE)
  Receive Date: 20180606
  Receipt Date: 20180606
  Transmission Date: 20180711
  Serious: Yes (Hospitalization, Other)
  Sender: FDA-Public Use
  Company Number: DE-ACCORD-067818

PATIENT
  Age: 34 Month
  Sex: Male
  Weight: 12.2 kg

DRUGS (10)
  1. ASPARAGINASE [Suspect]
     Active Substance: ASPARAGINASE
     Indication: ACUTE LYMPHOCYTIC LEUKAEMIA
     Dosage: ALSO RECEIVED AT DOSE 5400IU/DAY ON 10-MAR-2016,13-MAR-2016(ALSO1300IU/DAY),20-JUN-2016,27-JUN-2016
     Route: 042
     Dates: start: 20151223, end: 20151223
  2. METHOTREXATE. [Suspect]
     Active Substance: METHOTREXATE
     Indication: PHILADELPHIA CHROMOSOME POSITIVE
     Dosage: ALSO RECEIVED 2600 MG/DAY  FROM 14-JAN-2016 TO 15-JAN-2016
     Route: 042
     Dates: start: 20151218, end: 20151219
  3. VINCRISTINE [Suspect]
     Active Substance: VINCRISTINE
     Indication: PHILADELPHIA CHROMOSOME POSITIVE
     Dosage: ALSO RECEIVED ON 10-MAR-2016,17-MAR-2016,24-MAR-2016,27-JUN-2016,04-JUL-2016
     Route: 042
     Dates: start: 20151218
  4. DOXORUBICIN [Suspect]
     Active Substance: DOXORUBICIN
     Indication: PHILADELPHIA CHROMOSOME POSITIVE
     Dosage: ALSO RECEIVED 10-MAR-2016, 24-MAR-2016, 20-JUN-2016, 27-JUN-2016, 04-JUL-2016, 12-JUL-2016
     Route: 042
     Dates: start: 20160303
  5. ETOPOSIDE. [Suspect]
     Active Substance: ETOPOSIDE
     Indication: ACUTE LYMPHOCYTIC LEUKAEMIA
     Dosage: 5 APPLICATIONS TO 52 MG
     Route: 042
     Dates: start: 20160206, end: 20160208
  6. DAUNORUBICIN [Suspect]
     Active Substance: DAUNORUBICIN
     Indication: PHILADELPHIA CHROMOSOME POSITIVE
     Dates: start: 20160118
  7. CYCLOPHOSPHAMIDE/CYCLOPHOSPHAMIDE MONOHYDRATE [Suspect]
     Active Substance: CYCLOPHOSPHAMIDE
     Indication: PHILADELPHIA CHROMOSOME POSITIVE
     Dosage: ALSO RECEIVED FROM 03-DEC-2015 TO 03-DEC-2015, 570 MG 30-JUL-2016 TO 30-JUL-2016
     Route: 042
     Dates: start: 20151017, end: 20151017
  8. CYTARABINE/CYTARABINE HYDROCHLORIDE/CYTARABINE OCFOSFATE [Suspect]
     Active Substance: CYTARABINE
     Indication: PHILADELPHIA CHROMOSOME POSITIVE
     Dosage: ALSO RECEIVED ON 02-NOV-2015 TO 05-NOV-2015, 09-NOV-2015 TO 12-NOV-2015, 1080MG/DAY ON 21-DEC-2015
     Route: 042
     Dates: start: 20151019, end: 20151222
  9. IFOSFAMIDE. [Suspect]
     Active Substance: IFOSFAMIDE
     Indication: ACUTE LYMPHOCYTIC LEUKAEMIA
     Route: 042
     Dates: start: 20160115, end: 20160117
  10. GLIVEC [Suspect]
     Active Substance: IMATINIB MESYLATE
     Indication: ACUTE LYMPHOCYTIC LEUKAEMIA
     Route: 048
     Dates: start: 20150921, end: 20170307

REACTIONS (12)
  - Hypoxia [Recovered/Resolved]
  - Stomatitis [Unknown]
  - Muscular weakness [Unknown]
  - Constipation [Unknown]
  - Febrile neutropenia [Recovered/Resolved]
  - Lymphopenia [Unknown]
  - Upper respiratory tract infection [Recovered/Resolved]
  - Off label use [Unknown]
  - Urinary tract infection [Unknown]
  - Pruritus [Unknown]
  - Pharyngeal disorder [None]
  - Infectious colitis [Unknown]

NARRATIVE: CASE EVENT DATE: 20151110
